FAERS Safety Report 9744376 (Version 1)
Quarter: 2013Q4

REPORT INFORMATION
  Report Type: Spontaneous
  Country: US (occurrence: US)
  Receive Date: 20131210
  Receipt Date: 20131210
  Transmission Date: 20140711
  Serious: Yes (Hospitalization)
  Sender: FDA-Public Use
  Company Number: US-UCBSA-105019

PATIENT
  Age: 74 Year
  Sex: Female

DRUGS (4)
  1. NEUPRO [Suspect]
     Indication: RESTLESS LEGS SYNDROME
     Dosage: UNKNOWN
  2. NEUPRO [Suspect]
     Indication: RESTLESS LEGS SYNDROME
     Dosage: 6 MG
  3. SINEMET [Concomitant]
     Indication: BREAKTHROUGH PAIN
     Dosage: 25/100 MG
  4. OXYCONTIN [Concomitant]
     Indication: PAIN
     Dosage: 10 MG

REACTIONS (3)
  - Neuralgia [Recovering/Resolving]
  - Overdose [Unknown]
  - Drug ineffective [Unknown]
